FAERS Safety Report 6640274-X (Version None)
Quarter: 2010Q1

REPORT INFORMATION
  Report Type: 
  Country: None (occurrence: None)
  Receive Date: 20100302
  Receipt Date: 20091104
  Transmission Date: 20100710
  Serious: No
  Sender: FDA-Public Use
  Company Number: MC200900404

PATIENT
  Age: 73 Year
  Sex: Male

DRUGS (10)
  1. CLEVIPREX [Suspect]
     Indication: BLOOD PRESSURE INCREASED
     Dosage: SEE IMAGE
     Route: 042
     Dates: start: 20091022, end: 20091023
  2. CLEVIPREX [Suspect]
     Indication: BLOOD PRESSURE INCREASED
     Dosage: SEE IMAGE
     Route: 042
     Dates: start: 20091023, end: 20091023
  3. PROPOFOL [Concomitant]
  4. TRILIPIX (FENOFIBRIC ACID) [Concomitant]
  5. LIPITOR [Concomitant]
  6. DETROL LA [Concomitant]
  7. LISINOPRIL (LISINOPRIL DIHYDRATE) [Concomitant]
  8. NORVASC [Concomitant]
  9. FLOMAX (MORNIFLUMATE) [Concomitant]
  10. UROXATROL (ALFUZOSIN HYDROCHLORIDE) [Concomitant]

REACTIONS (2)
  - BLOOD PRESSURE INADEQUATELY CONTROLLED [None]
  - UNDERDOSE [None]
